FAERS Safety Report 17470893 (Version 1)
Quarter: 2020Q1

REPORT INFORMATION
  Report Type: Spontaneous
  Country: GB (occurrence: GB)
  Receive Date: 20200227
  Receipt Date: 20200227
  Transmission Date: 20200409
  Serious: Yes (Other)
  Sender: FDA-Public Use
  Company Number: GB-TEVA-2020-GB-1191739

PATIENT
  Age: 35 Year
  Sex: Male
  Weight: 54 kg

DRUGS (2)
  1. CARBAMAZEPINE. [Suspect]
     Active Substance: CARBAMAZEPINE
     Dosage: 100 MG
     Dates: start: 20200203
  2. ZOPICLONE [Concomitant]
     Active Substance: ZOPICLONE
     Dosage: 1 DF
     Dates: start: 20200204, end: 20200206

REACTIONS (1)
  - Swelling face [Recovered/Resolved]

NARRATIVE: CASE EVENT DATE: 20200207
